FAERS Safety Report 13836221 (Version 2)
Quarter: 2017Q3

REPORT INFORMATION
  Report Type: Report from Study
  Country: FR (occurrence: FR)
  Receive Date: 20170804
  Receipt Date: 20170828
  Transmission Date: 20171127
  Serious: Yes (Death, Other)
  Sender: FDA-Public Use
  Company Number: FR-BRISTOL-MYERS SQUIBB COMPANY-BMS-2017-069253

PATIENT
  Age: 61 Year
  Sex: Male

DRUGS (1)
  1. NIVOLUMAB [Suspect]
     Active Substance: NIVOLUMAB
     Indication: LUNG NEOPLASM MALIGNANT
     Dosage: 275 MG, UNK(EVERY 15 DAYS)
     Route: 042
     Dates: start: 20170127, end: 20170524

REACTIONS (2)
  - Malignant neoplasm progression [Fatal]
  - Pleural effusion [Unknown]

NARRATIVE: CASE EVENT DATE: 20170620
